FAERS Safety Report 8449517-3 (Version None)
Quarter: 2012Q2

REPORT INFORMATION
  Report Type: 
  Country: None (occurrence: None)
  Receive Date: 20120619
  Receipt Date: 20120606
  Transmission Date: 20120825
  Serious: Yes (Congenital Anomaly)
  Sender: FDA-Public Use
  Company Number: DE-MYLANLABS-2012S1011552

PATIENT
  Age: 0 Year
  Sex: Male
  Weight: 3.24 kg

DRUGS (2)
  1. CLOZAPINE [Suspect]
     Dosage: 50 [MG/D ]
     Route: 064
     Dates: start: 20110611, end: 20120310
  2. FEMIBION [Concomitant]
     Indication: PROPHYLAXIS OF NEURAL TUBE DEFECT
     Route: 064
     Dates: start: 20110722, end: 20120310

REACTIONS (2)
  - MATERNAL EXPOSURE DURING PREGNANCY [None]
  - VENTRICULAR SEPTAL DEFECT [None]
